FAERS Safety Report 15331379 (Version 1)
Quarter: 2018Q3

REPORT INFORMATION
  Report Type: Spontaneous
  Country: US (occurrence: US)
  Receive Date: 20180829
  Receipt Date: 20180829
  Transmission Date: 20181010
  Serious: Yes (Other)
  Sender: FDA-Public Use
  Company Number: US-ALEXION PHARMACEUTICALS INC-A201811128

PATIENT
  Sex: Female

DRUGS (1)
  1. STRENSIQ [Suspect]
     Active Substance: ASFOTASE ALFA
     Indication: HYPOPHOSPHATASIA
     Dosage: NOT REPORTEDBY REPORTER, NOT REPORTEDBY REPORTER
     Route: 058

REACTIONS (4)
  - Iron deficiency anaemia [Not Recovered/Not Resolved]
  - Tracheal deviation [Not Recovered/Not Resolved]
  - Injection site atrophy [Not Recovered/Not Resolved]
  - Nephrocalcinosis [Not Recovered/Not Resolved]
